FAERS Safety Report 7203695-2 (Version None)
Quarter: 2010Q4

REPORT INFORMATION
  Report Type: 
  Country: None (occurrence: None)
  Receive Date: 20101230
  Receipt Date: 20101217
  Transmission Date: 20110411
  Serious: Yes (Other)
  Sender: FDA-Public Use
  Company Number: PHHY2010JP78459

PATIENT
  Sex: Female
  Weight: 45 kg

DRUGS (25)
  1. AFINITOR [Suspect]
     Indication: METASTATIC RENAL CELL CARCINOMA
     Dosage: 10 MG DAILY
     Route: 048
     Dates: start: 20100518, end: 20100602
  2. AFINITOR [Suspect]
     Dosage: 5 MG DAILY
     Route: 048
     Dates: start: 20100611, end: 20100803
  3. AFINITOR [Suspect]
     Dosage: 10 MG DAILY
     Route: 048
     Dates: start: 20100804, end: 20100812
  4. AFINITOR [Suspect]
     Dosage: UNK
     Dates: start: 20100813
  5. FERROUS SULFATE [Concomitant]
     Dosage: 100 MG
     Route: 048
     Dates: start: 20100105
  6. FERROUS SULFATE [Concomitant]
     Dosage: 100 MG
     Route: 048
  7. INTERFERON ALFA [Concomitant]
     Indication: METASTATIC RENAL CELL CARCINOMA
     Dosage: 6000000 IU
     Dates: start: 20080515, end: 20080616
  8. SUTENT [Concomitant]
     Indication: METASTATIC RENAL CELL CARCINOMA
     Dosage: 50 MG
     Route: 048
     Dates: start: 20090217, end: 20091130
  9. NEXAVAR [Concomitant]
     Indication: METASTATIC RENAL CELL CARCINOMA
     Dosage: 800 MG
     Route: 048
     Dates: start: 20080804, end: 20090119
  10. HYPEN [Concomitant]
     Dosage: 400 MG
     Route: 048
     Dates: start: 20090120
  11. HYPEN [Concomitant]
     Dosage: 400 MG
     Route: 048
     Dates: start: 20090120
  12. ZANTAC [Concomitant]
     Dosage: 150 MG
     Route: 048
     Dates: start: 20100518
  13. ZANTAC [Concomitant]
     Dosage: 150 MG
     Route: 048
  14. GASPORT [Concomitant]
     Dosage: 20 MG
     Dates: start: 20091110, end: 20100531
  15. PANVITAN [Concomitant]
     Dosage: 2 G
     Route: 048
     Dates: start: 20100105
  16. PANVITAN [Concomitant]
     Dosage: 2 G
     Route: 048
  17. DEPAS [Concomitant]
     Dosage: 0.5 MG
     Dates: start: 20090605
  18. DEPAS [Concomitant]
     Dosage: 1 MG
     Route: 048
  19. BIOFERMIN [Concomitant]
     Dosage: 3 G
     Dates: start: 20100601
  20. BIOFERMIN [Concomitant]
     Dosage: 3 G
     Route: 048
  21. APHTASOLON [Concomitant]
     Dosage: UNK
     Dates: start: 20100601
  22. OLMETEC [Concomitant]
     Dosage: 20 MG
     Route: 048
     Dates: start: 20100611
  23. OLMETEC [Concomitant]
     Dosage: 20 MG
     Route: 048
  24. OLMETEC [Concomitant]
     Dosage: 40 MG, UNK
     Route: 048
  25. WYPAX [Concomitant]
     Dosage: 1 MG, UNK
     Route: 048
     Dates: start: 20101022, end: 20101104

REACTIONS (2)
  - DYSPHAGIA [None]
  - STOMATITIS [None]
